FAERS Safety Report 4283169-1 (Version None)
Quarter: 2004Q1

REPORT INFORMATION
  Report Type: 
  Country: None (occurrence: None)
  Receive Date: 20040121
  Receipt Date: 20040105
  Transmission Date: 20041129
  Serious: Yes (Death)
  Sender: FDA-Public Use
  Company Number: 232968

PATIENT
  Age: 34 Year
  Sex: Male
  Weight: 100 kg

DRUGS (1)
  1. NOVOSEVEN [Suspect]
     Indication: HAEMORRHAGE INTRACRANIAL
     Dosage: 100 UG/KG, SINGLE, INTRAVENOUS
     Route: 042

REACTIONS (2)
  - BRADYCARDIA [None]
  - ELECTROMECHANICAL DISSOCIATION [None]
